FAERS Safety Report 9064779 (Version 2)
Quarter: 2013Q1

REPORT INFORMATION
  Report Type: Spontaneous
  Country: AT (occurrence: AT)
  Receive Date: 20130130
  Receipt Date: 20130221
  Transmission Date: 20140127
  Serious: Yes (Death, Hospitalization, Other)
  Sender: FDA-Public Use
  Company Number: AT-CELGENEUS-009-50794-13013869

PATIENT
  Age: 89 Year
  Sex: Male

DRUGS (3)
  1. VIDAZA [Suspect]
     Indication: MYELODYSPLASTIC SYNDROME
     Route: 065
     Dates: start: 20110912, end: 20120910
  2. VIDAZA [Suspect]
     Route: 065
  3. VIDAZA [Suspect]
     Route: 065
     Dates: end: 201209

REACTIONS (2)
  - Sepsis [Fatal]
  - Myelodysplastic syndrome [Unknown]
